FAERS Safety Report 10408653 (Version 1)
Quarter: 2014Q3

REPORT INFORMATION
  Report Type: Spontaneous
  Country: GB (occurrence: None)
  Receive Date: 20140821
  Receipt Date: 20140821
  Transmission Date: 20150326
  Serious: Yes (Hospitalization)
  Sender: FDA-Public Use
  Company Number: AUR-APL-2014-08735

PATIENT
  Age: 69 Year
  Sex: Female
  Weight: 57 kg

DRUGS (11)
  1. VIDAZA [Suspect]
     Active Substance: AZACITIDINE
     Indication: ACUTE MYELOID LEUKAEMIA
     Dosage: 75 MG/M2, 7 DAYS OUT OF A 28- DAY CYCLE
     Dates: start: 20140310, end: 20140318
  2. ALENDRONIC ACID(ALENDRONIC ACID) [Concomitant]
  3. CALCITRIOL(CALCITRIOL) [Concomitant]
  4. FLUCONAZOLE(FLUCONAZOLE) [Concomitant]
  5. ACICLOVIR(ACICLOVIR) [Concomitant]
  6. CIPROFLOXACIN(CIPROFLOXACIN) [Concomitant]
  7. OMEPRAZOLE(OMEPRAZOLE) [Concomitant]
     Active Substance: OMEPRAZOLE
  8. ONDANSETRON [Suspect]
     Active Substance: ONDANSETRON
     Indication: ANTIEMETIC SUPPORTIVE CARE
  9. PREDNISOLONE/00016201/(PREDNISOLONE) [Concomitant]
  10. LEVOTHYROXINE(LEVOTHYROXINE) [Concomitant]
  11. TACROLIMUS(TACROLIMUS) [Concomitant]

REACTIONS (5)
  - Febrile neutropenia [None]
  - Cough [None]
  - Constipation [None]
  - Lower respiratory tract infection [None]
  - Abdominal pain [None]

NARRATIVE: CASE EVENT DATE: 20140403
